FAERS Safety Report 6448870-X (Version None)
Quarter: 2009Q4

REPORT INFORMATION
  Report Type: 
  Country: None (occurrence: None)
  Receive Date: 20091120
  Receipt Date: 20091112
  Transmission Date: 20100525
  Serious: Yes (Other)
  Sender: FDA-Public Use
  Company Number: US-ELI_LILLY_AND_COMPANY-US200911004343

PATIENT
  Sex: Male

DRUGS (4)
  1. ALIMTA [Suspect]
     Indication: NON-SMALL CELL LUNG CANCER
     Route: 042
     Dates: start: 20090101
  2. ZOMETA [Concomitant]
     Route: 042
  3. ALOXI [Concomitant]
     Route: 042
  4. DEXAMETHASONE [Concomitant]
     Route: 042

REACTIONS (7)
  - DYSSTASIA [None]
  - FEELING ABNORMAL [None]
  - HYPOKINESIA [None]
  - JOINT SWELLING [None]
  - MUSCULAR WEAKNESS [None]
  - MUSCULOSKELETAL STIFFNESS [None]
  - PAIN [None]
